FAERS Safety Report 15124839 (Version 1)
Quarter: 2018Q3

REPORT INFORMATION
  Report Type: Spontaneous
  Country: BR (occurrence: BR)
  Receive Date: 20180710
  Receipt Date: 20180710
  Transmission Date: 20181010
  Serious: Yes (Other)
  Sender: FDA-Public Use
  Company Number: BR-TORRENT-00004492

PATIENT
  Age: 7 Year
  Sex: Male
  Weight: 13 kg

DRUGS (7)
  1. BACLON [Concomitant]
     Indication: MUSCLE RELAXANT THERAPY
     Dosage: 2 TIMES DAILY
     Route: 048
     Dates: start: 2011
  2. LAMITOR CD [Suspect]
     Active Substance: LAMOTRIGINE
     Indication: SEIZURE
     Dosage: 2 TIMES DAILY
     Route: 048
     Dates: start: 201801, end: 201802
  3. KEPPRA [Concomitant]
     Active Substance: LEVETIRACETAM
     Indication: SEIZURE
     Dosage: 2 TIMES DAILY
     Route: 048
     Dates: start: 2017
  4. VALPAKINE [Concomitant]
     Active Substance: VALPROATE SODIUM
     Indication: SEIZURE
     Dosage: 3 TIMES DAILY
     Route: 048
     Dates: start: 2012
  5. VIMPAT [Concomitant]
     Active Substance: LACOSAMIDE
     Indication: SEIZURE
     Dosage: ONE TIME DAILY
     Route: 048
     Dates: start: 201709
  6. LAMITOR [Suspect]
     Active Substance: LAMOTRIGINE
     Indication: SEIZURE
     Dosage: 2 TIMES DAILY
     Route: 048
     Dates: start: 2013
  7. NITRAZEPAM [Concomitant]
     Active Substance: NITRAZEPAM
     Indication: SEIZURE
     Dosage: GERMED; 2 TIMES DAILY
     Route: 048
     Dates: start: 2015

REACTIONS (3)
  - Irritability [Unknown]
  - Product substitution issue [Unknown]
  - Seizure [Unknown]

NARRATIVE: CASE EVENT DATE: 201801
